FAERS Safety Report 6030471-9 (Version None)
Quarter: 2009Q1

REPORT INFORMATION
  Report Type: 
  Country: None (occurrence: None)
  Receive Date: 20090106
  Receipt Date: 20090106
  Transmission Date: 20090719
  Serious: Yes (Hospitalization)
  Sender: FDA-Public Use
  Company Number: None

PATIENT
  Age: 67 Year
  Sex: Female

DRUGS (1)
  1. COUNTERACT ALLERGY [Suspect]
     Indication: HYPERSENSITIVITY
     Dosage: 1 TABLET DAILY

REACTIONS (1)
  - HYPERSENSITIVITY [None]
